FAERS Safety Report 4940784-7 (Version None)
Quarter: 2006Q1

REPORT INFORMATION
  Report Type: 
  Country: None (occurrence: None)
  Receive Date: 20060313
  Receipt Date: 20060214
  Transmission Date: 20060701
  Serious: Yes (Life-Threatening, Other)
  Sender: FDA-Public Use
  Company Number: GR-AMGEN-UK169616

PATIENT
  Sex: Male
  Weight: 70 kg

DRUGS (2)
  1. KINERET [Suspect]
     Indication: RHEUMATOID ARTHRITIS
     Route: 058
     Dates: start: 20040101, end: 20050401
  2. PREZOLON [Concomitant]
     Route: 065

REACTIONS (1)
  - TUBERCULOSIS [None]
